FAERS Safety Report 6388775-6 (Version None)
Quarter: 2009Q4

REPORT INFORMATION
  Report Type: 
  Country: None (occurrence: None)
  Receive Date: 20091001
  Receipt Date: 20090917
  Transmission Date: 20100525
  Serious: Yes (Life-Threatening, Hospitalization)
  Sender: FDA-Public Use
  Company Number: 001227

PATIENT
  Sex: Female
  Weight: 66 kg

DRUGS (4)
  1. VIMPAT [Suspect]
     Indication: EPILEPSY
     Dosage: (200 MG BID ORAL)
     Route: 048
     Dates: start: 20090130, end: 20090709
  2. VIMPAT [Suspect]
     Indication: EPILEPSY
     Dosage: (200 MG BID ORAL)
     Route: 048
     Dates: start: 20090101
  3. LAMOTRIGINE [Suspect]
     Indication: EPILEPSY
     Dosage: (75 MG BID ORAL)
     Route: 048
     Dates: start: 20081017, end: 20090719
  4. VALPROATE SODIUM [Suspect]
     Indication: EPILEPSY
     Dosage: (1000 MG BID ORAL)
     Route: 048
     Dates: end: 20090709

REACTIONS (2)
  - ERYTHROPENIA [None]
  - IDIOPATHIC THROMBOCYTOPENIC PURPURA [None]
